FAERS Safety Report 16371981 (Version 1)
Quarter: 2019Q3

REPORT INFORMATION
  Report Type: Spontaneous
  Country: US (occurrence: US)
  Receive Date: 20190529
  Receipt Date: 20190529
  Transmission Date: 20191004
  Serious: Yes (Disabling)
  Sender: FDA-Public Use
  Company Number: None

PATIENT
  Age: 29 Year
  Sex: Female
  Weight: 56.25 kg

DRUGS (3)
  1. DUPIXENT [Suspect]
     Active Substance: DUPILUMAB
     Indication: ECZEMA
     Dosage: ?          OTHER FREQUENCY:ONE TIME BIWEEKLY;?
     Route: 030
     Dates: start: 20180825, end: 20190126
  2. DAILY ADULT VITAMINS [Concomitant]
  3. OTC ANTIHISTAMINES [Concomitant]

REACTIONS (12)
  - Lymphadenopathy [None]
  - Skin exfoliation [None]
  - Hypersensitivity [None]
  - Loss of personal independence in daily activities [None]
  - Rash [None]
  - Alopecia [None]
  - Stress [None]
  - Haemorrhoids [None]
  - Eczema [None]
  - Eye swelling [None]
  - Haematochezia [None]
  - Condition aggravated [None]

NARRATIVE: CASE EVENT DATE: 20180924
